FAERS Safety Report 7462759-9 (Version None)
Quarter: 2011Q1

REPORT INFORMATION
  Report Type: 
  Country: None (occurrence: None)
  Receive Date: 20110302
  Receipt Date: 20101119
  Transmission Date: 20110831
  Serious: Yes (Other)
  Sender: FDA-Public Use
  Company Number: 163-21880-10031796

PATIENT
  Sex: Male

DRUGS (9)
  1. ZOFRAN [Concomitant]
  2. DECADRON [Concomitant]
  3. VORICONAZOLE [Concomitant]
  4. ANTICOAGULATION (WARFARIN SODIUM) [Concomitant]
  5. REVLIMID [Suspect]
     Indication: MULTIPLE MYELOMA
     Dosage: 25 MG, 1 IN 1 D, PO, 10 MG, 1 IN 1 D, PO 15 MG, 1 IN 1 D, PO
     Route: 048
     Dates: start: 20090601
  6. REVLIMID [Suspect]
     Indication: MULTIPLE MYELOMA
     Dosage: 25 MG, 1 IN 1 D, PO, 10 MG, 1 IN 1 D, PO 15 MG, 1 IN 1 D, PO
     Route: 048
     Dates: start: 20091001
  7. REVLIMID [Suspect]
     Indication: MULTIPLE MYELOMA
     Dosage: 25 MG, 1 IN 1 D, PO, 10 MG, 1 IN 1 D, PO 15 MG, 1 IN 1 D, PO
     Route: 048
     Dates: start: 20081101
  8. REVLIMID [Suspect]
     Indication: MULTIPLE MYELOMA
     Dosage: 25 MG, 1 IN 1 D, PO, 10 MG, 1 IN 1 D, PO 15 MG, 1 IN 1 D, PO
     Route: 048
     Dates: start: 20090901
  9. ANTIBIOTIC (ANTIBIOTICS) [Concomitant]

REACTIONS (7)
  - DECREASED APPETITE [None]
  - COUGH [None]
  - PANCYTOPENIA [None]
  - ASTHENIA [None]
  - HYPERSOMNIA [None]
  - DRUG INEFFECTIVE [None]
  - BACK PAIN [None]
